FAERS Safety Report 9519200 (Version 1)
Quarter: 2013Q3

REPORT INFORMATION
  Report Type: Spontaneous
  Country: US (occurrence: None)
  Receive Date: 20130911
  Receipt Date: 20130911
  Transmission Date: 20140515
  Serious: Yes (Life-Threatening, Hospitalization)
  Sender: FDA-Public Use
  Company Number: None

PATIENT
  Age: 53 Year
  Sex: Male
  Weight: 89.36 kg

DRUGS (1)
  1. ENALAPRIL MALEATE [Suspect]
     Indication: HYPERTENSION
     Route: 048
     Dates: start: 20110101, end: 20121212

REACTIONS (7)
  - Abdominal distension [None]
  - Abdominal discomfort [None]
  - Tremor [None]
  - Hepatic enzyme increased [None]
  - Gallbladder disorder [None]
  - Hepatotoxicity [None]
  - Hepatic fibrosis [None]
